FAERS Safety Report 8859030 (Version 2)
Quarter: 2012Q4

REPORT INFORMATION
  Report Type: Report from Study
  Country: CA (occurrence: CA)
  Receive Date: 20121024
  Receipt Date: 20121119
  Transmission Date: 20130627
  Serious: Yes (Hospitalization)
  Sender: FDA-Public Use
  Company Number: CA-JNJFOC-20121008219

PATIENT
  Age: 8 Year
  Sex: Male
  Weight: 33.11 kg

DRUGS (5)
  1. REMICADE [Suspect]
     Indication: COLITIS ULCERATIVE
     Route: 042
     Dates: start: 201209
  2. REMICADE [Suspect]
     Indication: COLITIS ULCERATIVE
     Route: 042
     Dates: start: 201210
  3. PREDNISONE [Concomitant]
     Route: 048
  4. HYCORT ENEMA [Concomitant]
     Route: 065
  5. VANCOMYCIN [Concomitant]
     Route: 065

REACTIONS (2)
  - Frequent bowel movements [Not Recovered/Not Resolved]
  - Haematochezia [Not Recovered/Not Resolved]
